FAERS Safety Report 5662583-3 (Version None)
Quarter: 2008Q1

REPORT INFORMATION
  Report Type: 
  Country: None (occurrence: None)
  Receive Date: 20080310
  Receipt Date: 20080310
  Transmission Date: 20080703
  Serious: Yes (Life-Threatening, Hospitalization)
  Sender: FDA-Public Use
  Company Number: None

PATIENT
  Age: 42 Year
  Sex: Male
  Weight: 79.3795 kg

DRUGS (8)
  1. SEROQUEL  (ABILIFY 100MG/ 2MG/10MG ASTRA-ZENICA/ OTHERS [Suspect]
     Indication: MAJOR DEPRESSION
     Dosage: TOO MUCH TOO OFTEN PO
     Route: 048
     Dates: start: 20020401, end: 20050519
  2. RESPIRDOL [Suspect]
  3. ABILIFY [Suspect]
  4. TEGRETOL [Suspect]
     Dosage: IBID IBID PO
     Route: 048
     Dates: start: 20020401, end: 20050519
  5. DEPAKOTE [Suspect]
  6. GABAPENTIN [Concomitant]
  7. BUSPAR [Concomitant]
  8. ELECTROSHOCK THERAPY [Concomitant]

REACTIONS (8)
  - AMNESIA [None]
  - ATTENTION DEFICIT/HYPERACTIVITY DISORDER [None]
  - BRAIN INJURY [None]
  - CEREBROVASCULAR ACCIDENT [None]
  - COMPULSIONS [None]
  - DEPRESSION SUICIDAL [None]
  - INCORRECT DOSE ADMINISTERED [None]
  - SUICIDE ATTEMPT [None]
